FAERS Safety Report 14130373 (Version 3)
Quarter: 2017Q4

REPORT INFORMATION
  Report Type: Report from Study
  Country: US (occurrence: US)
  Receive Date: 20171026
  Receipt Date: 20171116
  Transmission Date: 20180321
  Serious: Yes (Other)
  Sender: FDA-Public Use
  Company Number: US-BAYER-2017-200829

PATIENT
  Age: 64 Year
  Sex: Male

DRUGS (3)
  1. STIVARGA [Suspect]
     Active Substance: REGORAFENIB
     Indication: COLORECTAL CANCER METASTATIC
     Dosage: 160 MG, QD, 3 WEEKS ON 1 WEEK OFF
     Route: 048
     Dates: start: 20171005, end: 201710
  2. STIVARGA [Suspect]
     Active Substance: REGORAFENIB
     Indication: COLORECTAL CANCER METASTATIC
     Dosage: DAILY DOSE 120 MG
     Dates: start: 20171016, end: 20171016
  3. STIVARGA [Suspect]
     Active Substance: REGORAFENIB
     Indication: COLORECTAL CANCER METASTATIC
     Dosage: 80 MG, DAILY, 3 WEEKS ON 1 WEEK OFF
     Dates: start: 20171101

REACTIONS (12)
  - Abdominal pain upper [Recovered/Resolved]
  - Loss of personal independence in daily activities [Recovering/Resolving]
  - Diarrhoea [Not Recovered/Not Resolved]
  - Blister [Recovering/Resolving]
  - Peripheral swelling [Recovering/Resolving]
  - Skin exfoliation [None]
  - Palmar-plantar erythrodysaesthesia syndrome [Recovering/Resolving]
  - Skin discolouration [Recovering/Resolving]
  - Walking disability [None]
  - Pain in extremity [Recovering/Resolving]
  - Vomiting [None]
  - Decreased activity [None]

NARRATIVE: CASE EVENT DATE: 201710
